FAERS Safety Report 9939209 (Version 1)
Quarter: 2014Q1

REPORT INFORMATION
  Report Type: Report from Study
  Country: US (occurrence: US)
  Receive Date: 20140303
  Receipt Date: 20140303
  Transmission Date: 20141002
  Serious: No
  Sender: FDA-Public Use
  Company Number: US-ABBVIE-13P-163-1038456-00

PATIENT
  Sex: Female

DRUGS (1)
  1. HUMIRA [Suspect]
     Indication: RHEUMATOID ARTHRITIS
     Route: 058
     Dates: start: 20100126

REACTIONS (6)
  - Inappropriate schedule of drug administration [Unknown]
  - Nail infection [Unknown]
  - Fall [Unknown]
  - Limb injury [Unknown]
  - Joint swelling [Unknown]
  - Pain in extremity [Unknown]
